FAERS Safety Report 25571411 (Version 2)
Quarter: 2025Q3

REPORT INFORMATION
  Report Type: Spontaneous
  Country: EU (occurrence: EU)
  Receive Date: 20250717
  Receipt Date: 20250729
  Transmission Date: 20251020
  Serious: Yes (Life-Threatening, Hospitalization, Other)
  Sender: RANBAXY
  Company Number: EU-SUN PHARMACEUTICAL INDUSTRIES INC-2025R1-517014

PATIENT
  Age: 84 Year
  Sex: Male

DRUGS (1)
  1. MIRTAZAPINE [Suspect]
     Active Substance: MIRTAZAPINE
     Indication: Product used for unknown indication
     Route: 065

REACTIONS (5)
  - Coma [Recovered/Resolved]
  - Depressed level of consciousness [Recovered/Resolved]
  - Respiratory failure [Recovered/Resolved]
  - Hypercapnia [Recovered/Resolved]
  - Extra dose administered [Unknown]
